FAERS Safety Report 9055194 (Version 3)
Quarter: 2013Q1

REPORT INFORMATION
  Report Type: Spontaneous
  Country: US (occurrence: US)
  Receive Date: 20130206
  Receipt Date: 20130325
  Transmission Date: 20140127
  Serious: No
  Sender: FDA-Public Use
  Company Number: US-PFIZER INC-2013046261

PATIENT
  Age: 78 Year
  Sex: Female

DRUGS (4)
  1. AMLODIPINE BESILATE [Suspect]
     Dosage: UNK
  2. DONEPEZIL HCL [Suspect]
     Dosage: UNK
  3. GLIMEPIRIDE [Suspect]
     Dosage: UNK
  4. SERTRALINE HCL [Suspect]
     Dosage: UNK

REACTIONS (2)
  - Condition aggravated [Unknown]
  - Memory impairment [Unknown]
